FAERS Safety Report 23431955 (Version 4)
Quarter: 2024Q1

REPORT INFORMATION
  Report Type: Spontaneous
  Country: US (occurrence: US)
  Receive Date: 20240123
  Receipt Date: 20240226
  Transmission Date: 20240410
  Serious: No
  Sender: FDA-Public Use
  Company Number: US-BIOGEN-2024BI01246668

PATIENT
  Sex: Male

DRUGS (1)
  1. TYSABRI [Suspect]
     Active Substance: NATALIZUMAB
     Indication: Multiple sclerosis
     Dosage: 300 MILLIGRAM/15 ML
     Route: 050
     Dates: start: 20220218

REACTIONS (6)
  - Communication disorder [Unknown]
  - Muscle spasticity [Unknown]
  - Pneumonia [Unknown]
  - Urinary tract infection [Unknown]
  - Muscle spasms [Unknown]
  - Pain in extremity [Unknown]
